FAERS Safety Report 11798508 (Version 1)
Quarter: 2015Q4

REPORT INFORMATION
  Report Type: Spontaneous
  Country: US (occurrence: US)
  Receive Date: 20151203
  Receipt Date: 20151203
  Transmission Date: 20160305
  Serious: Yes (Other)
  Sender: FDA-Public Use
  Company Number: US-REGENERON PHARMACEUTICALS, INC.-2015-11620

PATIENT

DRUGS (2)
  1. EYLEA [Suspect]
     Active Substance: AFLIBERCEPT
     Indication: DIABETIC RETINAL OEDEMA
     Dosage: 2 MG MILLIGRAM(S), EVERY 6 WEEKS
     Route: 031
     Dates: start: 201408, end: 20150508
  2. PREDNISOL                          /00016201/ [Concomitant]

REACTIONS (1)
  - Cerebrovascular accident [Unknown]
